FAERS Safety Report 7382344-7 (Version None)
Quarter: 2011Q1

REPORT INFORMATION
  Report Type: 
  Country: None (occurrence: None)
  Receive Date: 20110329
  Receipt Date: 20110228
  Transmission Date: 20110831
  Serious: Yes (Hospitalization, Other)
  Sender: FDA-Public Use
  Company Number: US-BAYER-201037958NA

PATIENT
  Sex: Female

DRUGS (8)
  1. IBUPROFEN [Concomitant]
     Dosage: 600 MG, UNK
     Route: 048
     Dates: start: 20061005
  2. FLUTICASONE PROPIONATE [Concomitant]
     Dosage: UNK
     Route: 045
     Dates: start: 20080930
  3. YASMIN [Suspect]
     Indication: PROPHYLAXIS
     Route: 048
     Dates: start: 20060101
  4. AMERGE [Concomitant]
     Indication: MIGRAINE
     Dosage: 2.5 MG, UNK
     Route: 048
  5. AZITHROMYCIN [Concomitant]
     Dosage: 250 MG, UNK
     Route: 048
     Dates: start: 20080930
  6. TRAMADOL [Concomitant]
     Dosage: 37.5 MG, UNK
     Route: 048
     Dates: start: 20061005
  7. YAZ [Suspect]
     Indication: PRODUCT USED FOR UNKNOWN INDICATION
  8. CARISOPRODOL [Concomitant]
     Dosage: 350 MG, UNK
     Route: 048
     Dates: start: 20090110

REACTIONS (2)
  - NEPHROLITHIASIS [None]
  - CHOLECYSTITIS CHRONIC [None]
